FAERS Safety Report 8871743 (Version 1)
Quarter: 2012Q4

REPORT INFORMATION
  Report Type: 
  Country: US (occurrence: US)
  Receive Date: 20121029
  Receipt Date: 20121029
  Transmission Date: 20130627
  Serious: No
  Sender: FDA-Public Use
  Company Number: US-JNJFOC-20121009785

PATIENT
  Age: 61 None
  Sex: Female
  Weight: 68.04 kg

DRUGS (6)
  1. DURAGESIC [Suspect]
     Indication: BACK PAIN
     Route: 062
     Dates: start: 201202
  2. NEURONTIN [Concomitant]
     Indication: BACK PAIN
     Route: 048
     Dates: start: 201209
  3. METHOCARBAMOL [Concomitant]
     Indication: MUSCLE RELAXANT THERAPY
     Route: 065
  4. VALIUM [Concomitant]
     Indication: PANIC ATTACK
     Route: 048
     Dates: start: 201202
  5. FIORICET [Concomitant]
     Indication: HEADACHE
     Route: 048
  6. LORTAB [Concomitant]
     Indication: PRODUCT USED FOR UNKNOWN INDICATION
     Route: 065
     Dates: start: 2012

REACTIONS (6)
  - Inappropriate schedule of drug administration [Not Recovered/Not Resolved]
  - Withdrawal syndrome [Not Recovered/Not Resolved]
  - Adverse drug reaction [Not Recovered/Not Resolved]
  - Back pain [Unknown]
  - Drug ineffective [Unknown]
  - Muscle spasms [Unknown]
